FAERS Safety Report 8130143 (Version 4)
Quarter: 2013Q4

REPORT INFORMATION
  Report Type: Spontaneous
  Country: US (occurrence: US)
  Receive Date: 20110912
  Receipt Date: 20131029
  Transmission Date: 20140711
  Serious: Yes (Other)
  Sender: FDA-Public Use
  Company Number: US-JNJFOC-20110902494

PATIENT
  Age: 42 Year
  Sex: Female
  Weight: 83.46 kg

DRUGS (17)
  1. DURAGESIC [Suspect]
     Indication: ARTHRITIS
     Route: 062
     Dates: start: 2005
  2. DURAGESIC [Suspect]
     Indication: PAIN
     Route: 062
     Dates: start: 2005
  3. DURAGESIC [Suspect]
     Indication: FIBROMYALGIA
     Route: 062
     Dates: start: 2005
  4. DURAGESIC [Suspect]
     Indication: ARTHRITIS
     Route: 062
  5. DURAGESIC [Suspect]
     Indication: ARTHRITIS
     Route: 062
     Dates: start: 2011
  6. DURAGESIC [Suspect]
     Indication: ARTHRITIS
     Route: 062
  7. DURAGESIC [Suspect]
     Indication: ARTHRITIS
     Route: 062
     Dates: start: 2011
  8. DURAGESIC [Suspect]
     Indication: PAIN
     Route: 062
  9. DURAGESIC [Suspect]
     Indication: PAIN
     Route: 062
     Dates: start: 2011
  10. DURAGESIC [Suspect]
     Indication: PAIN
     Route: 062
  11. DURAGESIC [Suspect]
     Indication: PAIN
     Route: 062
     Dates: start: 2011
  12. DURAGESIC [Suspect]
     Indication: FIBROMYALGIA
     Route: 062
     Dates: start: 2011
  13. DURAGESIC [Suspect]
     Indication: FIBROMYALGIA
     Route: 062
  14. DURAGESIC [Suspect]
     Indication: FIBROMYALGIA
     Route: 062
  15. DURAGESIC [Suspect]
     Indication: ARTHRITIS
     Route: 062
     Dates: start: 2011
  16. DURAGESIC [Suspect]
     Indication: PAIN
     Route: 062
     Dates: start: 2011
  17. DURAGESIC [Suspect]
     Indication: FIBROMYALGIA
     Route: 062
     Dates: start: 2011

REACTIONS (5)
  - Intervertebral disc degeneration [Not Recovered/Not Resolved]
  - Gait disturbance [Not Recovered/Not Resolved]
  - Pain [Recovered/Resolved]
  - Hypoaesthesia [Not Recovered/Not Resolved]
  - Product quality issue [Unknown]
